FAERS Safety Report 6476189-X (Version None)
Quarter: 2009Q4

REPORT INFORMATION
  Report Type: 
  Country: None (occurrence: None)
  Receive Date: 20091206
  Receipt Date: 20090821
  Transmission Date: 20100525
  Serious: No
  Sender: FDA-Public Use
  Company Number: US-ALLERGAN-0911681US

PATIENT
  Sex: Female

DRUGS (1)
  1. ELESTAT [Suspect]
     Indication: EYE ALLERGY
     Dosage: 1 GTT, BID
     Route: 047

REACTIONS (4)
  - EYE IRRITATION [None]
  - EYE PAIN [None]
  - HEADACHE [None]
  - OCULAR HYPERAEMIA [None]
